APPROVED DRUG PRODUCT: RYTHMOL
Active Ingredient: PROPAFENONE HYDROCHLORIDE
Strength: 225MG **Federal Register determination that product was not discontinued or withdrawn for safety or effectiveness reasons**
Dosage Form/Route: TABLET;ORAL
Application: N019151 | Product #003
Applicant: GLAXOSMITHKLINE LLC
Approved: Nov 20, 1992 | RLD: Yes | RS: No | Type: DISCN